FAERS Safety Report 6473731-X (Version None)
Quarter: 2009Q4

REPORT INFORMATION
  Report Type: 
  Country: None (occurrence: None)
  Receive Date: 20091204
  Receipt Date: 20091125
  Transmission Date: 20100525
  Serious: Yes (Other)
  Sender: FDA-Public Use
  Company Number: HR-JNJFOC-20091108015

PATIENT
  Sex: Female
  Weight: 65 kg

DRUGS (2)
  1. RISPOLEPT CONSTA [Suspect]
     Indication: SCHIZOAFFECTIVE DISORDER
     Route: 065
  2. DIAZEPAM [Concomitant]
     Route: 065

REACTIONS (1)
  - AGGRESSION [None]
